FAERS Safety Report 9125918 (Version 1)
Quarter: 2013Q1

REPORT INFORMATION
  Report Type: Spontaneous
  Country: US (occurrence: US)
  Receive Date: 20130117
  Receipt Date: 20130117
  Transmission Date: 20140127
  Serious: Yes (Death)
  Sender: FDA-Public Use
  Company Number: US-JNJFOC-20130107793

PATIENT
  Age: 46 Year
  Sex: Male

DRUGS (6)
  1. DARUNAVIR [Suspect]
     Indication: ANTIVIRAL TREATMENT
     Route: 048
     Dates: start: 200710
  2. RALTEGRAVIR [Suspect]
     Indication: ANTIVIRAL TREATMENT
     Route: 065
     Dates: start: 200710
  3. RITONAVIR [Suspect]
     Indication: ANTIVIRAL TREATMENT
     Route: 065
     Dates: start: 200710
  4. TENOFOVIR [Suspect]
     Indication: ANTIVIRAL TREATMENT
     Route: 065
     Dates: start: 200710
  5. EMTRICITABINE [Suspect]
     Indication: ANTIVIRAL TREATMENT
     Route: 065
     Dates: start: 200710
  6. ZIDOVUDINE [Suspect]
     Indication: ANTIVIRAL TREATMENT
     Route: 065
     Dates: start: 200710

REACTIONS (1)
  - Diffuse large B-cell lymphoma [Fatal]
